FAERS Safety Report 6638030-1 (Version None)
Quarter: 2010Q1

REPORT INFORMATION
  Report Type: 
  Country: None (occurrence: None)
  Receive Date: 20100317
  Receipt Date: 20100310
  Transmission Date: 20100710
  Serious: Yes (Other)
  Sender: FDA-Public Use
  Company Number: US-PFIZER INC-2010031555

PATIENT
  Age: 42 Year
  Sex: Female
  Weight: 104.3 kg

DRUGS (3)
  1. CELEBREX [Suspect]
     Indication: ARTHRALGIA
     Dosage: 200 MG, 1X/DAY
     Route: 048
     Dates: start: 20100225, end: 20100228
  2. KEFLEX [Concomitant]
     Indication: SKIN INFECTION
     Dosage: UNK
     Route: 048
  3. PEPCID [Concomitant]
     Indication: GASTROOESOPHAGEAL REFLUX DISEASE
     Dosage: AS NEEDED
     Route: 048

REACTIONS (1)
  - GRAND MAL CONVULSION [None]
